FAERS Safety Report 5793755-5 (Version None)
Quarter: 2008Q2

REPORT INFORMATION
  Report Type: 
  Country: None (occurrence: None)
  Receive Date: 20080627
  Receipt Date: 20080617
  Transmission Date: 20081010
  Serious: Yes (Other)
  Sender: FDA-Public Use
  Company Number: BR-PFIZER INC-2008052059

PATIENT
  Sex: Female
  Weight: 85 kg

DRUGS (3)
  1. CHANTIX [Suspect]
     Indication: SMOKING CESSATION THERAPY
     Route: 048
  2. ATENOLOL [Concomitant]
  3. CHLORTHALIDONE [Concomitant]

REACTIONS (2)
  - CARDIAC FIBRILLATION [None]
  - DRUG INEFFECTIVE [None]
